FAERS Safety Report 9325870 (Version 1)
Quarter: 2013Q2

REPORT INFORMATION
  Report Type: Spontaneous
  Country: US (occurrence: None)
  Receive Date: 20130603
  Receipt Date: 20130603
  Transmission Date: 20140414
  Serious: Yes (Death, Life-Threatening, Hospitalization, Other)
  Sender: FDA-Public Use
  Company Number: None

PATIENT
  Age: 30 Day
  Sex: Male
  Weight: 154.22 kg

DRUGS (1)
  1. ZOLEDRONIC ACID [Suspect]

REACTIONS (4)
  - Ulcer haemorrhage [None]
  - Dyspnoea [None]
  - Condition aggravated [None]
  - Malaise [None]
